FAERS Safety Report 15929491 (Version 1)
Quarter: 2019Q1

REPORT INFORMATION
  Report Type: Spontaneous
  Country: ES (occurrence: ES)
  Receive Date: 20190206
  Receipt Date: 20190206
  Transmission Date: 20190417
  Serious: Yes (Hospitalization)
  Sender: FDA-Public Use
  Company Number: ES-BAUSCH-BL-2019-003411

PATIENT
  Age: 86 Year
  Sex: Female

DRUGS (6)
  1. TRAMADOL/PARACETAMOL [Suspect]
     Active Substance: ACETAMINOPHEN\TRAMADOL
     Indication: SCIATICA
     Dosage: STRENGTH AND DOSE: 37.5/325 MG, EACH 8 H
     Route: 065
  2. DIAZEPAM. [Suspect]
     Active Substance: DIAZEPAM
     Indication: SCIATICA
     Route: 065
  3. METAMIZOL [Suspect]
     Active Substance: METAMIZOLE SODIUM
     Indication: SCIATICA
     Route: 065
  4. OMEPRAZOL [Concomitant]
     Active Substance: OMEPRAZOLE
     Indication: SCIATICA
     Route: 065
  5. DEXKETOPROFENO [Suspect]
     Active Substance: DEXKETOPROFEN
     Indication: SCIATICA
     Dosage: 25/8 H
     Route: 065
  6. PREDNISONA [Suspect]
     Active Substance: PREDNISONE
     Indication: PAIN
     Route: 065

REACTIONS (1)
  - Cholestasis [Recovered/Resolved]
